FAERS Safety Report 10217872 (Version 2)
Quarter: 2014Q2

REPORT INFORMATION
  Report Type: Spontaneous
  Country: US (occurrence: US)
  Receive Date: 20140605
  Receipt Date: 20140623
  Transmission Date: 20141212
  Serious: Yes (Other)
  Sender: FDA-Public Use
  Company Number: US-AMGEN INC.-USASP2014040057

PATIENT
  Age: 68 Year
  Sex: Male
  Weight: 89.8 kg

DRUGS (4)
  1. XGEVA [Suspect]
     Indication: PROPHYLAXIS
     Dosage: 120 MG, Q4WK
     Route: 058
     Dates: start: 20130301, end: 20140505
  2. XGEVA [Suspect]
     Indication: TOOTH DISORDER
  3. DEXAMETHASONE [Concomitant]
     Dosage: UNK
  4. TAXOTERE [Concomitant]
     Dosage: 150 MG, Q3WK
     Dates: start: 20140324

REACTIONS (1)
  - Osteonecrosis of jaw [Unknown]
